FAERS Safety Report 7130562-5 (Version None)
Quarter: 2010Q4

REPORT INFORMATION
  Report Type: 
  Country: None (occurrence: None)
  Receive Date: 20101029
  Receipt Date: 20100429
  Transmission Date: 20110411
  Serious: No
  Sender: FDA-Public Use
  Company Number: US-001968

PATIENT
  Sex: Male
  Weight: 72.5755 kg

DRUGS (7)
  1. DEGARELIX 240 MG [Suspect]
     Indication: PROSTATE CANCER
     Dosage: (240 MG SUBCUTANEOUS)
     Route: 058
     Dates: start: 20100426, end: 20100426
  2. ALLOPURINOL [Concomitant]
  3. ASPIRIN [Concomitant]
  4. FOMAX /00889901/ [Concomitant]
  5. HYDROCHLOROTHIAZIDE [Concomitant]
  6. LISINOPRIL [Concomitant]
  7. ZOCOR [Concomitant]

REACTIONS (4)
  - INJECTION SITE ERYTHEMA [None]
  - INJECTION SITE PAIN [None]
  - INJECTION SITE SWELLING [None]
  - INJECTION SITE WARMTH [None]
